FAERS Safety Report 12231015 (Version 1)
Quarter: 2016Q2

REPORT INFORMATION
  Report Type: Spontaneous
  Country: JP (occurrence: JP)
  Receive Date: 20160401
  Receipt Date: 20160401
  Transmission Date: 20160815
  Serious: Yes (Other)
  Sender: FDA-Public Use
  Company Number: PHHY2016JP043009

PATIENT
  Age: 61 Year
  Sex: Female

DRUGS (2)
  1. IRINOTECAN [Suspect]
     Active Substance: IRINOTECAN
     Indication: METASTASES TO LIVER
     Route: 041
  2. 5 FLUORO URACIL [Concomitant]
     Active Substance: FLUOROURACIL
     Indication: METASTASES TO LIVER
     Route: 041

REACTIONS (3)
  - Drug effect incomplete [Recovering/Resolving]
  - Neurotoxicity [Recovering/Resolving]
  - Concomitant disease aggravated [Recovering/Resolving]
